FAERS Safety Report 7618787-3 (Version None)
Quarter: 2011Q3

REPORT INFORMATION
  Report Type: 
  Country: None (occurrence: None)
  Receive Date: 20110718
  Receipt Date: 20110714
  Transmission Date: 20111222
  Serious: No
  Sender: FDA-Public Use
  Company Number: US-PFIZER INC-2011126251

PATIENT

DRUGS (1)
  1. CHANTIX [Suspect]
     Dosage: UNK

REACTIONS (7)
  - FLATULENCE [None]
  - CRYING [None]
  - NERVOUSNESS [None]
  - TREMOR [None]
  - HYPOAESTHESIA [None]
  - AGGRESSION [None]
  - ANGER [None]
